FAERS Safety Report 17253592 (Version 1)
Quarter: 2020Q1

REPORT INFORMATION
  Report Type: Spontaneous
  Country: FR (occurrence: FR)
  Receive Date: 20200109
  Receipt Date: 20200109
  Transmission Date: 20200409
  Serious: Yes (Life-Threatening, Hospitalization, Other)
  Sender: FDA-Public Use
  Company Number: FR-MYLANLABS-2020M1003715

PATIENT
  Age: 15 Year
  Sex: Female
  Weight: 65.1 kg

DRUGS (6)
  1. TRAMADOL. [Suspect]
     Active Substance: TRAMADOL
     Indication: PRODUCT USED FOR UNKNOWN INDICATION
     Dosage: NON PRECISEE
     Route: 048
     Dates: start: 20190913, end: 20190913
  2. LUMIRELAX                          /00047901/ [Suspect]
     Active Substance: METHOCARBAMOL
     Indication: PRODUCT USED FOR UNKNOWN INDICATION
     Dosage: NON PRECISEE
     Route: 048
     Dates: start: 20190913, end: 20190913
  3. LOXEN                              /00639802/ [Suspect]
     Active Substance: NICARDIPINE HYDROCHLORIDE
     Indication: PRODUCT USED FOR UNKNOWN INDICATION
     Dosage: NON PRECISEE
     Route: 048
     Dates: start: 20190913, end: 20190913
  4. NAPROXENE                          /00256201/ [Suspect]
     Active Substance: NAPROXEN
     Indication: PRODUCT USED FOR UNKNOWN INDICATION
     Dosage: NON PRECISEE
     Route: 048
     Dates: start: 20190913, end: 20190913
  5. TAREG [Suspect]
     Active Substance: VALSARTAN
     Indication: PRODUCT USED FOR UNKNOWN INDICATION
     Dosage: NON PRECISEE
     Route: 048
     Dates: start: 20190913, end: 20190913
  6. PARACETAMOL [Suspect]
     Active Substance: ACETAMINOPHEN
     Indication: PRODUCT USED FOR UNKNOWN INDICATION
     Dosage: NON PRECISEE
     Route: 048
     Dates: start: 20190913, end: 20190913

REACTIONS (7)
  - Hypoventilation [Recovered/Resolved]
  - Altered state of consciousness [Recovered/Resolved]
  - Generalised tonic-clonic seizure [Recovered/Resolved]
  - Haemodynamic instability [Recovered/Resolved]
  - Acute kidney injury [Recovered/Resolved]
  - Poisoning deliberate [Unknown]
  - Acidosis [Recovered/Resolved]

NARRATIVE: CASE EVENT DATE: 20190913
